FAERS Safety Report 16840427 (Version 3)
Quarter: 2020Q3

REPORT INFORMATION
  Report Type: Spontaneous
  Country: CA (occurrence: CA)
  Receive Date: 20190923
  Receipt Date: 20200716
  Transmission Date: 20201102
  Serious: Yes (Other)
  Sender: FDA-Public Use
  Company Number: CA-PFIZER INC-2019030853

PATIENT
  Age: 59 Year
  Sex: Female

DRUGS (9)
  1. XELJANZ [Suspect]
     Active Substance: TOFACITINIB CITRATE
     Indication: RHEUMATOID ARTHRITIS
     Dosage: 5 MG, 2X/DAY
     Route: 048
     Dates: start: 20190108, end: 20190121
  2. RISEDRONATE SODIUM. [Concomitant]
     Active Substance: RISEDRONATE SODIUM
     Dosage: 35 MG, WEEKLY
     Route: 065
  3. XELJANZ [Suspect]
     Active Substance: TOFACITINIB CITRATE
     Dosage: 5 MG, 2X/DAY
     Route: 048
     Dates: start: 2019, end: 201902
  4. XELJANZ [Suspect]
     Active Substance: TOFACITINIB CITRATE
     Dosage: 5 MG, 1X/DAY
     Route: 048
     Dates: start: 2019
  5. XELJANZ [Suspect]
     Active Substance: TOFACITINIB CITRATE
     Dosage: 5 MG, 2X/DAY
     Route: 048
     Dates: start: 20190507, end: 201908
  6. JAMP FOLIC ACID [Concomitant]
     Dosage: 5 MG, 1X/DAY
     Route: 065
  7. RABEPRAZOLE SODIUM. [Concomitant]
     Active Substance: RABEPRAZOLE SODIUM
     Dosage: 20 MG, 1X/DAY
     Route: 065
  8. METHOTREXATE. [Concomitant]
     Active Substance: METHOTREXATE
     Indication: RHEUMATOID ARTHRITIS
     Dosage: 15 MG, WEEKLY
     Route: 048
     Dates: start: 20190108, end: 20190121
  9. XELJANZ [Suspect]
     Active Substance: TOFACITINIB CITRATE
     Dosage: 5 MG, 2X/DAY
     Route: 048
     Dates: start: 2019, end: 201909

REACTIONS (10)
  - Bowel movement irregularity [Unknown]
  - Rectal haemorrhage [Unknown]
  - Nasopharyngitis [Unknown]
  - Intentional product misuse [Unknown]
  - Therapeutic product effect incomplete [Recovering/Resolving]
  - Haemorrhoids [Unknown]
  - Urinary tract infection [Recovered/Resolved]
  - Constipation [Unknown]
  - White blood cell count abnormal [Unknown]
  - Infection [Unknown]

NARRATIVE: CASE EVENT DATE: 2019
